FAERS Safety Report 12417432 (Version 3)
Quarter: 2016Q4

REPORT INFORMATION
  Report Type: Spontaneous
  Country: BR (occurrence: BR)
  Receive Date: 20160530
  Receipt Date: 20161227
  Transmission Date: 20170207
  Serious: Yes (Other)
  Sender: FDA-Public Use
  Company Number: BR-JNJFOC-20140409297

PATIENT
  Sex: Female

DRUGS (2)
  1. REMICADE [Suspect]
     Active Substance: INFLIXIMAB
     Indication: RHEUMATOID ARTHRITIS
     Route: 042
     Dates: start: 20140214
  2. REMICADE [Suspect]
     Active Substance: INFLIXIMAB
     Indication: RHEUMATOID ARTHRITIS
     Route: 042

REACTIONS (12)
  - Sinusitis [Recovering/Resolving]
  - Gastritis [Recovering/Resolving]
  - Osteoporosis [Recovering/Resolving]
  - Influenza [Not Recovered/Not Resolved]
  - Insomnia [Unknown]
  - Joint lock [Unknown]
  - Cardiovascular disorder [Unknown]
  - Memory impairment [Recovering/Resolving]
  - Secretion discharge [Unknown]
  - Pain [Recovering/Resolving]
  - Muscular weakness [Unknown]
  - Deafness [Not Recovered/Not Resolved]

NARRATIVE: CASE EVENT DATE: 2008
